FAERS Safety Report 12294144 (Version 1)
Quarter: 2016Q2

REPORT INFORMATION
  Report Type: Other
  Country: JP (occurrence: JP)
  Receive Date: 20160422
  Receipt Date: 20160422
  Transmission Date: 20160815
  Serious: Yes (Hospitalization)
  Sender: FDA-Public Use
  Company Number: JP-ACTELION-A-CH2016-134813

PATIENT
  Age: 19 Year
  Sex: Male
  Weight: 55.8 kg

DRUGS (1)
  1. EPOPROSTENOL ACT [Suspect]
     Active Substance: EPOPROSTENOL
     Indication: PULMONARY ARTERIAL HYPERTENSION
     Dosage: UNK
     Route: 042
     Dates: start: 201212

REACTIONS (12)
  - Concomitant disease aggravated [Recovering/Resolving]
  - Body temperature increased [Recovering/Resolving]
  - Thyroxine free increased [Recovering/Resolving]
  - Local swelling [Recovering/Resolving]
  - Goitre [Recovering/Resolving]
  - White blood cell count increased [Recovering/Resolving]
  - Tri-iodothyronine increased [Recovering/Resolving]
  - Hyperthyroidism [Unknown]
  - C-reactive protein increased [Recovering/Resolving]
  - Feeling abnormal [Recovering/Resolving]
  - Autoimmune thyroiditis [Recovering/Resolving]
  - Blood thyroid stimulating hormone increased [Recovering/Resolving]

NARRATIVE: CASE EVENT DATE: 201501
